FAERS Safety Report 5961026-X (Version None)
Quarter: 2008Q4

REPORT INFORMATION
  Report Type: 
  Country: None (occurrence: None)
  Receive Date: 20081121
  Receipt Date: 20080605
  Transmission Date: 20090506
  Serious: No
  Sender: FDA-Public Use
  Company Number: A0731479A

PATIENT
  Age: 90 Year
  Sex: Female

DRUGS (5)
  1. LANOXIN [Suspect]
     Dosage: 250MCG PER DAY
     Route: 048
     Dates: start: 20080510
  2. ATENOLOL [Concomitant]
  3. GLYBURIDE [Concomitant]
  4. LISINOPRIL [Concomitant]
  5. CRESTOR [Concomitant]

REACTIONS (1)
  - PRURITUS [None]
